FAERS Safety Report 6272768-3 (Version None)
Quarter: 2009Q3

REPORT INFORMATION
  Report Type: 
  Country: None (occurrence: None)
  Receive Date: 20090716
  Receipt Date: 20090716
  Transmission Date: 20100115
  Serious: Yes (Hospitalization, Other)
  Sender: FDA-Public Use
  Company Number: None

PATIENT
  Age: 40 Year
  Sex: Male
  Weight: 90.7194 kg

DRUGS (4)
  1. LEXAPRO [Suspect]
     Indication: CORONARY ARTERY DISEASE
     Dosage: 10 MG 1 - DAILY ORAL
     Route: 048
     Dates: start: 20060301
  2. LEXAPRO [Suspect]
     Indication: DEPRESSION
     Dosage: 10 MG 1 - DAILY ORAL
     Route: 048
     Dates: start: 20060301
  3. LEXAPRO [Suspect]
     Indication: CORONARY ARTERY DISEASE
     Dosage: 10 MG 1 - DAILY ORAL
     Route: 048
     Dates: start: 20060401
  4. LEXAPRO [Suspect]
     Indication: DEPRESSION
     Dosage: 10 MG 1 - DAILY ORAL
     Route: 048
     Dates: start: 20060401

REACTIONS (3)
  - AGGRESSION [None]
  - MANIA [None]
  - PERSONALITY CHANGE [None]
